FAERS Safety Report 13671031 (Version 2)
Quarter: 2017Q3

REPORT INFORMATION
  Report Type: Spontaneous
  Country: US (occurrence: US)
  Receive Date: 20170620
  Receipt Date: 20170710
  Transmission Date: 20171127
  Serious: Yes (Hospitalization)
  Sender: FDA-Public Use
  Company Number: US-VERTEX PHARMACEUTICALS-2017-003208

PATIENT
  Age: 12 Year
  Sex: Male

DRUGS (3)
  1. ORKAMBI [Suspect]
     Active Substance: IVACAFTOR\LUMACAFTOR
     Indication: CYSTIC FIBROSIS
     Dosage: 2 DF (200/125 MG EACH), BID
     Route: 048
     Dates: start: 20160811, end: 201704
  2. MONTELUKAST [Concomitant]
     Active Substance: MONTELUKAST SODIUM
  3. ORKAMBI [Suspect]
     Active Substance: IVACAFTOR\LUMACAFTOR
     Dosage: 2 DF (200/125 MG EACH), BID
     Route: 048
     Dates: start: 20170614

REACTIONS (1)
  - Lung infection [Unknown]

NARRATIVE: CASE EVENT DATE: 201702
